FAERS Safety Report 6599225-9 (Version None)
Quarter: 2010Q1

REPORT INFORMATION
  Report Type: 
  Country: None (occurrence: None)
  Receive Date: 20100224
  Receipt Date: 20100214
  Transmission Date: 20100710
  Serious: Yes (Hospitalization)
  Sender: FDA-Public Use
  Company Number: PHHY2010DE09793

PATIENT
  Sex: Female
  Weight: 68 kg

DRUGS (6)
  1. ALISKIREN ALI+ [Suspect]
     Indication: HYPERTENSION
     Dosage: 300 MG, QD
     Route: 048
     Dates: start: 20090115, end: 20090218
  2. METOPROLOL TARTRATE [Suspect]
     Dosage: 50 MG, QD
     Dates: start: 20081215, end: 20090218
  3. TOREM [Concomitant]
     Dosage: 10 MG, QD
     Dates: start: 20081215
  4. ACE INHIBITOR NOS [Concomitant]
  5. VOTUM [Concomitant]
     Dosage: 50 MG, QD
     Dates: start: 20090217, end: 20090218
  6. ANTIHYPERTENSIVE DRUGS [Concomitant]

REACTIONS (1)
  - HYPERTENSIVE CRISIS [None]
